FAERS Safety Report 12365366 (Version 1)
Quarter: 2016Q2

REPORT INFORMATION
  Report Type: Spontaneous
  Country: US (occurrence: None)
  Receive Date: 20160512
  Receipt Date: 20160512
  Transmission Date: 20160815
  Serious: No
  Sender: FDA-Public Use
  Company Number: None

PATIENT
  Age: 77 Year
  Sex: Female

DRUGS (5)
  1. CELEBREX [Concomitant]
     Active Substance: CELECOXIB
  2. ASPIRIN. [Concomitant]
     Active Substance: ASPIRIN
  3. LEUCOVORIN. [Concomitant]
     Active Substance: LEUCOVORIN
  4. MULTI VITAMIN [Concomitant]
     Active Substance: VITAMINS
  5. ENBREL [Suspect]
     Active Substance: ETANERCEPT
     Indication: RHEUMATOID ARTHRITIS
     Dates: start: 20121009

REACTIONS (1)
  - Condition aggravated [None]
